FAERS Safety Report 16212930 (Version 1)
Quarter: 2019Q2

REPORT INFORMATION
  Report Type: Spontaneous
  Country: US (occurrence: US)
  Receive Date: 20190418
  Receipt Date: 20190418
  Transmission Date: 20190711
  Serious: Yes (Life-Threatening, Other)
  Sender: FDA-Public Use
  Company Number: US-ELI_LILLY_AND_COMPANY-US201904008546

PATIENT
  Age: 72 Year
  Sex: Male
  Weight: 112 kg

DRUGS (8)
  1. HUMALOG [Suspect]
     Active Substance: INSULIN LISPRO
     Indication: TYPE 2 DIABETES MELLITUS
     Dosage: UNK, UNKNOWN
     Route: 065
     Dates: start: 20170109
  2. SEMAGLUTIDE [Suspect]
     Active Substance: SEMAGLUTIDE
     Indication: TYPE 2 DIABETES MELLITUS
     Dosage: UNK UNK, UNKNOWN
     Route: 065
     Dates: start: 20170131, end: 20170207
  3. SEMAGLUTIDE [Suspect]
     Active Substance: SEMAGLUTIDE
     Dosage: UNK, UNKNOWN
     Route: 065
     Dates: start: 20180216
  4. SEMAGLUTIDE [Suspect]
     Active Substance: SEMAGLUTIDE
     Indication: TYPE 2 DIABETES MELLITUS
     Dosage: UNK, UNKNOWN
     Route: 065
     Dates: start: 20170131, end: 20170207
  5. SEMAGLUTIDE [Suspect]
     Active Substance: SEMAGLUTIDE
     Dosage: UNK UNK, UNKNOWN
     Route: 065
     Dates: start: 20180216
  6. LANTUS [Concomitant]
     Active Substance: INSULIN GLARGINE
     Indication: TYPE 2 DIABETES MELLITUS
     Dosage: UNK, UNKNOWN
     Route: 065
     Dates: start: 20160531, end: 20170206
  7. SEMAGLUTIDE [Suspect]
     Active Substance: SEMAGLUTIDE
     Dosage: UNK, UNKNOWN
     Route: 065
     Dates: start: 20180216
  8. SEMAGLUTIDE [Suspect]
     Active Substance: SEMAGLUTIDE
     Indication: TYPE 2 DIABETES MELLITUS
     Dosage: UNK, UNKNOWN
     Route: 065
     Dates: start: 20170131, end: 20170207

REACTIONS (3)
  - Hypoglycaemia [Recovered/Resolved]
  - Fall [Recovered/Resolved]
  - Incorrect dose administered [Unknown]

NARRATIVE: CASE EVENT DATE: 20180507
